FAERS Safety Report 14031070 (Version 1)
Quarter: 2017Q4

REPORT INFORMATION
  Report Type: Spontaneous
  Country: US (occurrence: US)
  Receive Date: 20171002
  Receipt Date: 20171002
  Transmission Date: 20180321
  Serious: No
  Sender: FDA-Public Use
  Company Number: US-ASTRAZENECA-2017SE98345

PATIENT
  Age: 478 Month
  Sex: Male
  Weight: 91.6 kg

DRUGS (3)
  1. SEROQUEL XR [Suspect]
     Active Substance: QUETIAPINE FUMARATE
     Indication: BIPOLAR DISORDER
     Dosage: 200MG AT NIGHT (GENERIC)
     Route: 048
  2. SEROQUEL XR [Suspect]
     Active Substance: QUETIAPINE FUMARATE
     Indication: BIPOLAR DISORDER
     Dosage: 50MG TWO TIMES A DAY (GENERIC) BUT HE TOOK ONLY 50MG AT NIGHT FOR 3 TO 4 WEEKS
     Route: 048
     Dates: end: 201709
  3. SEROQUEL XR [Suspect]
     Active Substance: QUETIAPINE FUMARATE
     Indication: BIPOLAR DISORDER
     Dosage: 300MG AT NIGHT (GENERIC)
     Route: 048

REACTIONS (10)
  - Off label use [Unknown]
  - Product use issue [Recovered/Resolved]
  - Anxiety [Not Recovered/Not Resolved]
  - Weight increased [Recovered/Resolved]
  - Feeling abnormal [Recovered/Resolved]
  - Drug effect incomplete [Unknown]
  - Malaise [Not Recovered/Not Resolved]
  - Lethargy [Recovered/Resolved]
  - Nausea [Not Recovered/Not Resolved]
  - Withdrawal syndrome [Unknown]

NARRATIVE: CASE EVENT DATE: 201709
